FAERS Safety Report 7178436-8 (Version None)
Quarter: 2010Q4

REPORT INFORMATION
  Report Type: 
  Country: None (occurrence: None)
  Receive Date: 20101220
  Receipt Date: 20101210
  Transmission Date: 20110411
  Serious: Yes (Other)
  Sender: FDA-Public Use
  Company Number: NL-B.I. PHARMACEUTICALS,INC./RIDGEFIELD-2010-DE-06887GD

PATIENT
  Sex: Male

DRUGS (3)
  1. NEVIRAPINE [Suspect]
     Indication: PROPHYLAXIS AGAINST HIV INFECTION
     Dosage: 200 MG
     Route: 048
  2. LAMIVUDINE + ZIDOVUDINE [Suspect]
     Indication: PROPHYLAXIS AGAINST HIV INFECTION
     Dosage: ZIDOVUDINE/LAMIVUDINE 300/150 MG TWICE DAILY
  3. NELFINAVIR [Suspect]
     Indication: PROPHYLAXIS AGAINST HIV INFECTION
     Dosage: 2500 MG

REACTIONS (5)
  - ALANINE AMINOTRANSFERASE INCREASED [None]
  - INFLUENZA LIKE ILLNESS [None]
  - MYALGIA [None]
  - PYREXIA [None]
  - RASH [None]
